FAERS Safety Report 21388497 (Version 1)
Quarter: 2022Q3

REPORT INFORMATION
  Report Type: Spontaneous
  Country: DE (occurrence: DE)
  Receive Date: 20220928
  Receipt Date: 20220928
  Transmission Date: 20221026
  Serious: Yes (Hospitalization, Other)
  Sender: FDA-Public Use
  Company Number: DE-ANIPHARMA-2022-DE-000150

PATIENT
  Age: 74 Year
  Sex: Male
  Weight: 92 kg

DRUGS (18)
  1. CANDESARTAN CILEXETIL [Suspect]
     Active Substance: CANDESARTAN CILEXETIL
     Indication: Product used for unknown indication
     Dosage: 8 MG DAILY
     Route: 048
  2. BISOPROLOL [Concomitant]
     Active Substance: BISOPROLOL
     Dosage: 5 MG, 0.5-0-0.5-0
     Route: 048
  3. TAMSULOSIN [Concomitant]
     Active Substance: TAMSULOSIN
     Dosage: .4 MG DAILY
     Route: 065
  4. MAGNESIUM [Concomitant]
     Active Substance: MAGNESIUM
     Dosage: 243 MG DAILY
     Route: 065
  5. ZOPICLONE [Concomitant]
     Active Substance: ZOPICLONE
     Dosage: 7.5 MG DAILY
     Route: 048
  6. SPIRIVA [Concomitant]
     Active Substance: TIOTROPIUM BROMIDE MONOHYDRATE
     Dosage: 18 UG DAILY
     Route: 065
  7. BUDESONIDE [Concomitant]
     Active Substance: BUDESONIDE
     Dosage: 200 UG BID
     Route: 065
  8. ALBUTEROL [Concomitant]
     Active Substance: ALBUTEROL
     Dosage: 1.25MG/2.5ML, 1-0-0-0
     Route: 065
  9. FORMOTEROL [Concomitant]
     Active Substance: FORMOTEROL
     Dosage: 12 UG BID
     Route: 065
  10. PANTOPRAZOLE SODIUM [Concomitant]
     Active Substance: PANTOPRAZOLE SODIUM
     Dosage: 40 MG DAILY
     Route: 048
  11. TORSEMIDE [Suspect]
     Active Substance: TORSEMIDE
     Dosage: 50 MG DAILY
     Route: 048
  12. METFORMIN [Suspect]
     Active Substance: METFORMIN HYDROCHLORIDE
     Dosage: 500 MG DAILY
     Route: 048
  13. FEBUXOSTAT [Suspect]
     Active Substance: FEBUXOSTAT
     Dosage: 80 MG DAILY
     Route: 048
  14. APIXABAN [Suspect]
     Active Substance: APIXABAN
     Dosage: 5 MG DAILY
     Route: 048
  15. CLOPIDOGREL [Suspect]
     Active Substance: CLOPIDOGREL BISULFATE
     Dosage: 75 MG DAILY
     Route: 048
  16. METAMIZOL [Concomitant]
     Active Substance: METAMIZOLE SODIUM
     Dosage: 500 MG QID
     Route: 048
  17. LEVOTHYROXINE [Concomitant]
     Active Substance: LEVOTHYROXINE
     Dosage: 150 UG DAILY
     Route: 048
  18. LIRAGLUTIDE [Concomitant]
     Active Substance: LIRAGLUTIDE
     Dosage: 6 MG/ML, NK
     Route: 065

REACTIONS (6)
  - Anaemia [Unknown]
  - Lower gastrointestinal haemorrhage [Unknown]
  - Acute kidney injury [Unknown]
  - Hypokalaemia [Unknown]
  - Haematochezia [Unknown]
  - Respiratory tract haemorrhage [Unknown]
